FAERS Safety Report 10312300 (Version 3)
Quarter: 2014Q4

REPORT INFORMATION
  Report Type: Spontaneous
  Country: JP (occurrence: JP)
  Receive Date: 20140718
  Receipt Date: 20141113
  Transmission Date: 20150528
  Serious: Yes (Life-Threatening, Other)
  Sender: FDA-Public Use
  Company Number: JP-TAKEDA-2014TJP008998

PATIENT
  Age: 81 Year
  Sex: Male

DRUGS (5)
  1. IRBETAN [Concomitant]
     Active Substance: IRBESARTAN
     Dosage: 50 MG, QD
     Route: 048
  2. URITOS [Concomitant]
     Active Substance: IMIDAFENACIN
     Dosage: 0.1 MG, BID
     Route: 048
  3. URIEF [Concomitant]
     Active Substance: SILODOSIN
     Dosage: 4 MG, BID
     Route: 048
  4. WARFARIN POTASSIUM [Concomitant]
     Active Substance: WARFARIN POTASSIUM
     Dosage: 3 DF, QD
     Route: 048
  5. LANSAP [Suspect]
     Active Substance: AMOXICILLIN\CLARITHROMYCIN\LANSOPRAZOLE
     Indication: HELICOBACTER INFECTION
     Dosage: 0.5 DF, BID
     Route: 048
     Dates: start: 20140703, end: 20140708

REACTIONS (3)
  - Intestinal obstruction [Recovering/Resolving]
  - Hydronephrosis [Recovered/Resolved]
  - Urinary retention [Recovering/Resolving]

NARRATIVE: CASE EVENT DATE: 20140706
